FAERS Safety Report 6696006-2 (Version None)
Quarter: 2010Q2

REPORT INFORMATION
  Report Type: 
  Country: None (occurrence: None)
  Receive Date: 20100412
  Receipt Date: 20091201
  Transmission Date: 20101027
  Serious: Yes (Other)
  Sender: FDA-Public Use
  Company Number: E-09-157 (09-209)

PATIENT
  Age: 71 Year
  Sex: 0
  Weight: 118.2 kg

DRUGS (1)
  1. PREDNISONE [Suspect]
     Indication: MYASTHENIA GRAVIS
     Dosage: 1 TABLET DAILY ORAL
     Route: 048

REACTIONS (1)
  - DRUG INEFFECTIVE [None]
